FAERS Safety Report 9442711 (Version 1)
Quarter: 2013Q3

REPORT INFORMATION
  Report Type: Spontaneous
  Country: US (occurrence: None)
  Receive Date: 20130805
  Receipt Date: 20130805
  Transmission Date: 20140515
  Serious: No
  Sender: FDA-Public Use
  Company Number: None

PATIENT
  Age: 83 Year
  Sex: Male
  Weight: 63.5 kg

DRUGS (1)
  1. PROSTIGMINE [Suspect]
     Indication: MYASTHENIA GRAVIS
     Dosage: 15MG BID PO
     Route: 048

REACTIONS (2)
  - Diplopia [None]
  - Drug ineffective [None]
